FAERS Safety Report 4553448-9 (Version None)
Quarter: 2005Q1

REPORT INFORMATION
  Report Type: 
  Country: None (occurrence: None)
  Receive Date: 20050112
  Receipt Date: 20041222
  Transmission Date: 20050727
  Serious: Yes (Hospitalization, Other)
  Sender: FDA-Public Use
  Company Number: JP_041205301

PATIENT
  Age: 4 Year
  Sex: Male

DRUGS (4)
  1. ONCOVIN [Suspect]
     Indication: NEUROBLASTOMA
  2. CYCLOPHOSPHAMIDE [Concomitant]
  3. CISPLATIN [Concomitant]
  4. PIRARUBICIN [Concomitant]

REACTIONS (8)
  - CONDITION AGGRAVATED [None]
  - CONVULSION [None]
  - CORD BLOOD TRANSPLANT THERAPY [None]
  - ENDOCRINE DISORDER [None]
  - HYPERTENSION [None]
  - HYPERTENSIVE ENCEPHALOPATHY [None]
  - NEUROBLASTOMA [None]
  - REVERSIBLE POSTERIOR LEUKOENCEPHALOPATHY SYNDROME [None]
